FAERS Safety Report 9717836 (Version 1)
Quarter: 2013Q4

REPORT INFORMATION
  Report Type: Spontaneous
  Country: US (occurrence: US)
  Receive Date: 20131125
  Receipt Date: 20131125
  Transmission Date: 20140711
  Serious: No
  Sender: FDA-Public Use
  Company Number: US-VIVUS-2012V1000259

PATIENT
  Sex: Female
  Weight: 108.96 kg

DRUGS (5)
  1. QSYMIA 3.75MG/23MG [Suspect]
     Indication: WEIGHT DECREASED
     Route: 048
     Dates: start: 201210, end: 201210
  2. QSYMIA 7.5MG/46MG [Suspect]
     Dosage: DAILY DOSE: 1 CAPSULE,
     Route: 048
     Dates: start: 201210
  3. ACTOS [Concomitant]
     Indication: DIABETES MELLITUS
  4. METFORMIN [Concomitant]
     Indication: DIABETES MELLITUS
  5. ZOCOR [Concomitant]
     Indication: BLOOD CHOLESTEROL

REACTIONS (1)
  - Visual impairment [Not Recovered/Not Resolved]
